FAERS Safety Report 24677031 (Version 2)
Quarter: 2024Q4

REPORT INFORMATION
  Report Type: Spontaneous
  Country: JP (occurrence: JP)
  Receive Date: 20241129
  Receipt Date: 20241205
  Transmission Date: 20250115
  Serious: Yes (Other)
  Sender: SANOFI AVENTIS
  Company Number: JP-SA-2024SA344615

PATIENT
  Age: 78 Year
  Sex: Male

DRUGS (1)
  1. JEVTANA [Suspect]
     Active Substance: CABAZITAXEL
     Indication: Prostate cancer
     Route: 041

REACTIONS (7)
  - Infusion site necrosis [Unknown]
  - Infusion site discharge [Unknown]
  - Infusion site erythema [Unknown]
  - Administration site warmth [Recovered/Resolved]
  - Administration site pain [Recovered/Resolved]
  - Administration site pruritus [Unknown]
  - Puncture site pain [Unknown]
